FAERS Safety Report 6360831-8 (Version None)
Quarter: 2009Q3

REPORT INFORMATION
  Report Type: 
  Country: None (occurrence: None)
  Receive Date: 20090918
  Receipt Date: 20090907
  Transmission Date: 20100115
  Serious: Yes (Life-Threatening, Disabling)
  Sender: FDA-Public Use
  Company Number: GB-ROCHE-655220

PATIENT
  Age: 53 Year
  Sex: Female
  Weight: 90 kg

DRUGS (5)
  1. CAPECITABINE [Suspect]
     Indication: COLON CANCER
     Route: 048
     Dates: start: 20070726, end: 20070809
  2. OXALIPLATIN [Suspect]
     Indication: COLON CANCER
     Route: 042
     Dates: start: 20070726, end: 20070726
  3. DEXAMETHASONE [Concomitant]
     Indication: VOMITING
     Route: 048
     Dates: start: 20070726, end: 20070728
  4. DOMPERIDONE [Concomitant]
     Indication: NAUSEA
     Dates: start: 20070726
  5. GRANISETRON HCL [Concomitant]
     Indication: NAUSEA
     Dates: start: 20070726

REACTIONS (2)
  - HEMIPARESIS [None]
  - THROMBOTIC STROKE [None]
